FAERS Safety Report 9030936 (Version 2)
Quarter: 2013Q3

REPORT INFORMATION
  Report Type: Report from Study
  Country: CA (occurrence: CA)
  Receive Date: 20130123
  Receipt Date: 20130719
  Transmission Date: 20140515
  Serious: Yes (Other)
  Sender: FDA-Public Use
  Company Number: CA-ABBOTT-12P-028-0975081-00

PATIENT
  Sex: Male
  Weight: 90.8 kg

DRUGS (3)
  1. HUMIRA [Suspect]
     Indication: PRODUCT USED FOR UNKNOWN INDICATION
     Dosage: LATEST DOSE: 03 JUL 2013
     Route: 058
     Dates: start: 20120210
  2. SYMBICORT [Concomitant]
     Indication: ASTHMA
     Route: 055
     Dates: start: 2006
  3. VENTOLIN [Concomitant]
     Indication: ASTHMA
     Dates: start: 1990

REACTIONS (9)
  - Myocardial ischaemia [Unknown]
  - Chest pain [Recovered/Resolved]
  - Coronary artery occlusion [Recovered/Resolved]
  - Therapy change [Not Recovered/Not Resolved]
  - Nausea [Not Recovered/Not Resolved]
  - Ear pain [Not Recovered/Not Resolved]
  - Chest pain [Recovered/Resolved]
  - Dizziness [Not Recovered/Not Resolved]
  - Hypotension [Unknown]
